FAERS Safety Report 21187533 (Version 1)
Quarter: 2022Q3

REPORT INFORMATION
  Report Type: Report from Study
  Country: US (occurrence: US)
  Receive Date: 20220808
  Receipt Date: 20220808
  Transmission Date: 20221027
  Serious: Yes (Other)
  Sender: FDA-Public Use
  Company Number: US-INCYTE CORPORATION-2022IN007487

PATIENT

DRUGS (2)
  1. JAKAFI [Suspect]
     Active Substance: RUXOLITINIB
     Indication: Myelofibrosis
     Dosage: 10 MILLIGRAM, BID
     Route: 065
  2. JAKAFI [Suspect]
     Active Substance: RUXOLITINIB
     Indication: Chronic graft versus host disease
     Dosage: UNK (TAPERING DOWN)
     Route: 065
     Dates: start: 202204, end: 202205

REACTIONS (5)
  - Scleroderma [Unknown]
  - Fatigue [Unknown]
  - Skin tightness [Unknown]
  - Platelet count decreased [Unknown]
  - Hepatic enzyme increased [Unknown]
